FAERS Safety Report 9178472 (Version 3)
Quarter: 2014Q2

REPORT INFORMATION
  Report Type: Spontaneous
  Country: US (occurrence: US)
  Receive Date: 20130321
  Receipt Date: 20140515
  Transmission Date: 20141212
  Serious: Yes (Hospitalization)
  Sender: FDA-Public Use
  Company Number: US-BAYER-2013-034464

PATIENT
  Age: 24 Year
  Sex: Female

DRUGS (11)
  1. YAZ [Suspect]
     Dosage: UNK
     Dates: start: 200606, end: 200607
  2. YAZ [Suspect]
     Dosage: UNK
     Dates: start: 200701, end: 200703
  3. YAZ [Suspect]
     Dosage: UNK
     Dates: start: 200707, end: 200709
  4. YASMIN [Suspect]
  5. OCELLA [Suspect]
  6. LEXAPRO [Concomitant]
  7. ALLEGRA [Concomitant]
  8. PERCOCET [Concomitant]
  9. COLACE [Concomitant]
  10. SENNA [Concomitant]
  11. ZYRTEC [Concomitant]

REACTIONS (16)
  - Cholelithiasis [None]
  - Cholecystitis chronic [None]
  - Gallbladder non-functioning [None]
  - Biliary colic [None]
  - Procedural complication [None]
  - Pancreatitis [None]
  - Impaired gastric emptying [None]
  - Gastrooesophageal reflux disease [None]
  - Injury [None]
  - Emotional distress [None]
  - Chest pain [None]
  - Abdominal pain [None]
  - Back pain [None]
  - Headache [None]
  - Nausea [None]
  - General physical health deterioration [None]
